FAERS Safety Report 9281119 (Version 3)
Quarter: 2013Q2

REPORT INFORMATION
  Report Type: Spontaneous
  Country: US (occurrence: US)
  Receive Date: 20130509
  Receipt Date: 20130520
  Transmission Date: 20140414
  Serious: No
  Sender: FDA-Public Use
  Company Number: US-TEVA-401986USA

PATIENT
  Sex: Female
  Weight: 90.8 kg

DRUGS (6)
  1. NUVIGIL [Suspect]
     Indication: MULTIPLE SCLEROSIS
     Route: 048
     Dates: start: 2012
  2. NUVIGIL [Suspect]
     Indication: FATIGUE
  3. NUVIGIL [Suspect]
     Indication: SOMNOLENCE
  4. EFFEXOR-XR [Concomitant]
     Indication: MULTIPLE SCLEROSIS
     Dosage: 75 MILLIGRAM DAILY;
     Route: 048
  5. VITAMINS [Concomitant]
     Indication: VITAMIN SUPPLEMENTATION
  6. LEVOTHYROXINE [Concomitant]
     Indication: THYROID FUNCTION TEST ABNORMAL
     Dosage: .05 MILLIGRAM DAILY;
     Route: 048

REACTIONS (5)
  - Drug ineffective for unapproved indication [Unknown]
  - Drug effect decreased [Unknown]
  - Asthenia [Unknown]
  - Hypersomnia [Unknown]
  - Off label use [Unknown]
